FAERS Safety Report 7919266 (Version 2)
Quarter: 2013Q3

REPORT INFORMATION
  Report Type: Report from Study
  Country: UG (occurrence: UG)
  Receive Date: 20110428
  Receipt Date: 20130912
  Transmission Date: 20140515
  Serious: Yes (Hospitalization, Other)
  Sender: FDA-Public Use
  Company Number: UG-ABBOTT-11P-165-0719057-00

PATIENT
  Sex: Female

DRUGS (9)
  1. ALUVIA TABLETS [Suspect]
     Indication: HIV INFECTION
     Route: 048
     Dates: start: 20100922, end: 20110312
  2. TENOFOVIR [Concomitant]
     Indication: HIV INFECTION
     Dates: start: 20100922, end: 20110312
  3. SEPTRIN [Concomitant]
     Indication: PRODUCT USED FOR UNKNOWN INDICATION
     Dates: start: 20040515, end: 20110312
  4. ORAL REHYDRATION SALTS [Concomitant]
     Indication: PRODUCT USED FOR UNKNOWN INDICATION
     Dates: start: 20110304, end: 20110307
  5. HALDOL [Concomitant]
     Indication: PRODUCT USED FOR UNKNOWN INDICATION
     Dates: start: 20110316
  6. ARTANE [Concomitant]
     Indication: PRODUCT USED FOR UNKNOWN INDICATION
     Dates: start: 20110316
  7. METRONIDAZOLE [Concomitant]
     Indication: PRODUCT USED FOR UNKNOWN INDICATION
     Dates: start: 20110304, end: 20110312
  8. COTRIMOXAZOLE [Concomitant]
     Indication: PRODUCT USED FOR UNKNOWN INDICATION
     Dates: start: 20100922
  9. LAMIVUDINE [Concomitant]
     Indication: HIV INFECTION
     Dates: start: 20100922, end: 20110312

REACTIONS (3)
  - Hepatitis [Recovered/Resolved]
  - Pyrexia [Recovered/Resolved]
  - Oral candidiasis [Recovered/Resolved]
